FAERS Safety Report 24355383 (Version 1)
Quarter: 2024Q3

REPORT INFORMATION
  Report Type: Report from Study
  Country: GB (occurrence: GB)
  Receive Date: 20240924
  Receipt Date: 20240924
  Transmission Date: 20241017
  Serious: Yes (Other)
  Sender: JAZZ
  Company Number: GB-JAZZ PHARMACEUTICALS-2024-GB-015401

PATIENT
  Age: 9 Year
  Sex: Male

DRUGS (7)
  1. EPIDIOLEX [Suspect]
     Active Substance: CANNABIDIOL
     Indication: Product used for unknown indication
     Dosage: 2.3 MILLIGRAM/KILOGRAM, BID
  2. EPIDIOLEX [Suspect]
     Active Substance: CANNABIDIOL
     Dosage: 3.5 MILLIGRAM/KILOGRAM, BID
  3. EPIDIOLEX [Suspect]
     Active Substance: CANNABIDIOL
     Dosage: 4.7 MILLIGRAM/KILOGRAM, BID
  4. EPIDIOLEX [Suspect]
     Active Substance: CANNABIDIOL
     Dosage: 5.9 MILLIGRAM/KILOGRAM, BID
  5. EPIDIOLEX [Suspect]
     Active Substance: CANNABIDIOL
     Dosage: 5.5 MILLIGRAM/KILOGRAM, BID
  6. VALPROATE SODIUM [Concomitant]
     Active Substance: VALPROATE SODIUM
     Dosage: 32 MILLIGRAM/KILOGRAM, QD
  7. CLOBAZAM [Concomitant]
     Active Substance: CLOBAZAM
     Dosage: 0.75 MILLIGRAM/KILOGRAM, QD

REACTIONS (2)
  - Transaminases increased [Recovered/Resolved]
  - Gamma-glutamyltransferase increased [Recovering/Resolving]
